FAERS Safety Report 5154243-2 (Version None)
Quarter: 2006Q4

REPORT INFORMATION
  Report Type: 
  Country: None (occurrence: None)
  Receive Date: 20061120
  Receipt Date: 20061108
  Transmission Date: 20070319
  Serious: Yes (Hospitalization)
  Sender: FDA-Public Use
  Company Number: GB-GILEAD-2006-0010619

PATIENT
  Sex: Female
  Weight: 64.922 kg

DRUGS (4)
  1. TRUVADA [Suspect]
     Route: 048
     Dates: start: 20061004, end: 20061008
  2. NEVIRAPINE [Suspect]
     Route: 048
     Dates: start: 20060927, end: 20061008
  3. TERBINAFINE [Concomitant]
     Route: 048
     Dates: start: 20060101
  4. ZOPICLON [Concomitant]

REACTIONS (4)
  - CIRCUMORAL OEDEMA [None]
  - PRURITUS [None]
  - PYREXIA [None]
  - RASH ERYTHEMATOUS [None]
